FAERS Safety Report 8251284-3 (Version None)
Quarter: 2012Q1

REPORT INFORMATION
  Report Type: 
  Country: None (occurrence: None)
  Receive Date: 20120328
  Receipt Date: 20120315
  Transmission Date: 20120608
  Serious: Yes (Life-Threatening, Hospitalization)
  Sender: FDA-Public Use
  Company Number: 2012MA001645

PATIENT
  Sex: Male

DRUGS (7)
  1. CYANOCOBALAMIN [Suspect]
     Indication: VITAMIN B12 DEFICIENCY
     Dosage: 1 MG;Q3MO
     Dates: start: 20110101
  2. METFORMIN HYDROCHLORIDE [Suspect]
     Indication: TYPE 2 DIABETES MELLITUS
  3. SIMVASTATIN [Concomitant]
  4. VENLAFAXINE [Concomitant]
  5. ENALAPRIL MALEATE [Concomitant]
  6. ASPIRIN [Concomitant]
  7. UNIKALK [Concomitant]

REACTIONS (5)
  - DEPRESSION [None]
  - VITAMIN B12 DEFICIENCY [None]
  - TREMOR [None]
  - WEIGHT DECREASED [None]
  - SUICIDE ATTEMPT [None]
